FAERS Safety Report 4348872-3 (Version None)
Quarter: 2004Q1

REPORT INFORMATION
  Report Type: 
  Country: None (occurrence: None)
  Receive Date: 20040325
  Receipt Date: 20040203
  Transmission Date: 20041129
  Serious: No
  Sender: FDA-Public Use
  Company Number: USA040258450

PATIENT
  Age: 54 Year
  Sex: Male
  Weight: 81 kg

DRUGS (3)
  1. FORTEO [Suspect]
     Indication: OSTEOPOROSIS
     Dosage: 20 UG/1 DAY
     Dates: start: 20040116
  2. MULTIVITAMIN [Concomitant]
  3. HERBS [Concomitant]

REACTIONS (2)
  - ACCIDENTAL OVERDOSE [None]
  - MUSCLE CRAMP [None]
